FAERS Safety Report 8961115 (Version 1)
Quarter: 2012Q4

REPORT INFORMATION
  Report Type: 
  Country: US (occurrence: US)
  Receive Date: 20121212
  Receipt Date: 20121212
  Transmission Date: 20130627
  Serious: Yes (Hospitalization)
  Sender: FDA-Public Use
  Company Number: US-GLAXOSMITHKLINE-A0989559A

PATIENT
  Sex: Female

DRUGS (1)
  1. LAMICTAL [Suspect]
     Indication: PRODUCT USED FOR UNKNOWN INDICATION
     Dosage: 150MG Unknown
     Route: 065
     Dates: start: 20091128

REACTIONS (3)
  - Malaise [Not Recovered/Not Resolved]
  - Drug administration error [Unknown]
  - Sleep apnoea syndrome [Unknown]
